FAERS Safety Report 17663067 (Version 1)
Quarter: 2020Q2

REPORT INFORMATION
  Report Type: Spontaneous
  Country: IN (occurrence: IN)
  Receive Date: 20200413
  Receipt Date: 20200413
  Transmission Date: 20200713
  Serious: Yes (Other)
  Sender: FDA-Public Use
  Company Number: IN-JNJFOC-20200407696

PATIENT

DRUGS (2)
  1. EVICEL [Suspect]
     Active Substance: FIBRINOGEN HUMAN\THROMBIN HUMAN
     Indication: HAEMOSTASIS
     Route: 061
  2. OMRIX PRESSURE REGULATOR [Suspect]
     Active Substance: DEVICE
     Indication: HAEMOSTASIS
     Route: 065

REACTIONS (3)
  - Discomfort [Unknown]
  - Haemorrhage [Unknown]
  - Off label use [Unknown]
